FAERS Safety Report 14242650 (Version 3)
Quarter: 2018Q3

REPORT INFORMATION
  Report Type: Spontaneous
  Country: US (occurrence: US)
  Receive Date: 20171201
  Receipt Date: 20180831
  Transmission Date: 20181010
  Serious: Yes (Hospitalization, Other)
  Sender: FDA-Public Use
  Company Number: US-ASTRAZENECA-2017SF21077

PATIENT
  Age: 791 Month
  Sex: Male
  Weight: 93.9 kg

DRUGS (35)
  1. ESCITALOPRAM [Concomitant]
     Active Substance: ESCITALOPRAM OXALATE
     Indication: DEPRESSION
     Route: 065
     Dates: start: 201801
  2. TAMSULOSIN [Concomitant]
     Active Substance: TAMSULOSIN
     Indication: DEPRESSION
     Route: 065
     Dates: start: 2012, end: 2017
  3. ONDANSETRON [Concomitant]
     Active Substance: ONDANSETRON
     Dosage: MG/2 ML VIAL ONCE
     Route: 065
  4. NEXIUM [Suspect]
     Active Substance: ESOMEPRAZOLE MAGNESIUM
     Indication: GASTRIC DISORDER
     Route: 048
     Dates: start: 201304, end: 201511
  5. NEXIUM [Suspect]
     Active Substance: ESOMEPRAZOLE MAGNESIUM
     Indication: PEPTIC ULCER
     Route: 048
     Dates: start: 201603, end: 201708
  6. NEXIUM [Suspect]
     Active Substance: ESOMEPRAZOLE MAGNESIUM
     Indication: GASTRIC DISORDER
     Dosage: GENERIC
     Route: 048
     Dates: start: 2016, end: 2017
  7. ASPIRIN. [Concomitant]
     Active Substance: ASPIRIN
     Indication: DEPRESSION
     Dosage: 81 MG
     Route: 065
  8. NEXIUM [Suspect]
     Active Substance: ESOMEPRAZOLE MAGNESIUM
     Indication: GASTROOESOPHAGEAL REFLUX DISEASE
     Route: 048
     Dates: start: 201304, end: 201512
  9. NEXIUM [Suspect]
     Active Substance: ESOMEPRAZOLE MAGNESIUM
     Indication: GASTROOESOPHAGEAL REFLUX DISEASE
     Route: 048
     Dates: start: 201304, end: 201511
  10. NEXIUM [Suspect]
     Active Substance: ESOMEPRAZOLE MAGNESIUM
     Indication: GASTRIC DISORDER
     Route: 048
     Dates: start: 201603, end: 201708
  11. PRAVASTATINE [Concomitant]
     Active Substance: PRAVASTATIN
     Indication: DEPRESSION
     Route: 065
     Dates: start: 201801
  12. TESSALON [Concomitant]
     Active Substance: BENZONATATE
     Dosage: 200 MILLIGRAM TID
     Route: 048
  13. FENOFIBRATE. [Concomitant]
     Active Substance: FENOFIBRATE
     Indication: HYPERLIPIDAEMIA
     Dosage: 160 MILLIGRAM DAILY
     Route: 048
     Dates: start: 2008, end: 2017
  14. ALBUTEROL. [Concomitant]
     Active Substance: ALBUTEROL
     Dosage: 3 ML QID
     Route: 048
  15. NITROGLYCERIN. [Concomitant]
     Active Substance: NITROGLYCERIN
     Dosage: 0.4 MG
     Route: 060
  16. NEXIUM [Suspect]
     Active Substance: ESOMEPRAZOLE MAGNESIUM
     Indication: GASTRIC DISORDER
     Route: 048
     Dates: start: 201304, end: 201512
  17. NEXIUM [Suspect]
     Active Substance: ESOMEPRAZOLE MAGNESIUM
     Indication: GASTROOESOPHAGEAL REFLUX DISEASE
     Dosage: GENERIC
     Route: 048
     Dates: start: 2016, end: 2017
  18. NITROGLYCERIN. [Concomitant]
     Active Substance: NITROGLYCERIN
     Dosage: INCH UDC ONCE
     Route: 065
  19. PRAVASTATIN. [Concomitant]
     Active Substance: PRAVASTATIN
     Dosage: 40 MG
     Route: 048
  20. METOPROLOL. [Concomitant]
     Active Substance: METOPROLOL
     Dosage: 50 MG
     Route: 048
  21. NEXIUM [Suspect]
     Active Substance: ESOMEPRAZOLE MAGNESIUM
     Indication: PEPTIC ULCER
     Route: 048
     Dates: start: 201304, end: 201512
  22. METOPROLOL. [Concomitant]
     Active Substance: METOPROLOL
     Indication: DEPRESSION
     Route: 065
     Dates: start: 2008, end: 2017
  23. TRAMADOL. [Concomitant]
     Active Substance: TRAMADOL
     Dosage: 50 MG
     Route: 048
  24. NEXIUM [Suspect]
     Active Substance: ESOMEPRAZOLE MAGNESIUM
     Indication: PEPTIC ULCER
     Dosage: GENERIC
     Route: 048
     Dates: start: 2016, end: 2017
  25. ESCITALOPRAM [Concomitant]
     Active Substance: ESCITALOPRAM OXALATE
     Indication: ANXIETY
     Route: 065
     Dates: start: 201801
  26. GUAIFENESIN. [Concomitant]
     Active Substance: GUAIFENESIN
     Dosage: 600 MG BID
     Route: 048
  27. DICLOFENAC SODIUM. [Concomitant]
     Active Substance: DICLOFENAC SODIUM
     Dosage: 50 MG
     Route: 048
  28. NEXIUM [Suspect]
     Active Substance: ESOMEPRAZOLE MAGNESIUM
     Indication: GASTROOESOPHAGEAL REFLUX DISEASE
     Route: 048
     Dates: start: 201603, end: 201708
  29. RASAGILINE. [Concomitant]
     Active Substance: RASAGILINE
     Indication: DEPRESSION
     Route: 065
     Dates: start: 201801
  30. NAPROXEN. [Concomitant]
     Active Substance: NAPROXEN
     Dosage: 50O MG
     Route: 048
  31. CLONAZEPAM. [Concomitant]
     Active Substance: CLONAZEPAM
     Indication: ANXIETY
     Route: 065
     Dates: start: 2014
  32. NEXIUM [Suspect]
     Active Substance: ESOMEPRAZOLE MAGNESIUM
     Indication: PEPTIC ULCER
     Route: 048
     Dates: start: 201304, end: 201511
  33. CARBIDOPA. [Concomitant]
     Active Substance: CARBIDOPA
     Indication: PARKINSON^S DISEASE
     Route: 065
     Dates: start: 2013, end: 2017
  34. LISINOPRIL/HYDROCHLORTHIAZIDE [Concomitant]
     Active Substance: HYDROCHLOROTHIAZIDE\LISINOPRIL
     Dosage: 10?12.5 MILLIGRAMDAILY
     Route: 048
  35. MORPHINE SULFATE. [Concomitant]
     Active Substance: MORPHINE SULFATE
     Dosage: 2 MG/ML VIAL ONCE
     Route: 065

REACTIONS (3)
  - Renal injury [Unknown]
  - Chronic kidney disease [Not Recovered/Not Resolved]
  - Acute kidney injury [Not Recovered/Not Resolved]

NARRATIVE: CASE EVENT DATE: 201312
